FAERS Safety Report 23223668 (Version 1)
Quarter: 2023Q4

REPORT INFORMATION
  Report Type: Spontaneous
  Country: US (occurrence: US)
  Receive Date: 20231124
  Receipt Date: 20231124
  Transmission Date: 20240109
  Serious: Yes (Hospitalization, Other)
  Sender: FDA-Public Use
  Company Number: US-MYLANLABS-2013S1024415

PATIENT
  Age: 14 Year
  Sex: Female

DRUGS (4)
  1. CITALOPRAM [Suspect]
     Active Substance: CITALOPRAM HYDROBROMIDE
     Indication: Product used for unknown indication
     Dosage: UNK UNK,UNK,,SINGLE
     Route: 048
  2. BUPROPION HYDROCHLORIDE [Suspect]
     Active Substance: BUPROPION HYDROCHLORIDE
     Indication: Product used for unknown indication
     Dosage: 9 G,ONCE,
     Route: 048
  3. HYDROXYZINE PAMOATE [Suspect]
     Active Substance: HYDROXYZINE PAMOATE
     Indication: Product used for unknown indication
     Dosage: UNK UNK,UNK,,SINGLE
     Route: 048
  4. FAT EMULSION NOS [Suspect]
     Active Substance: EGG PHOSPHOLIPIDS\SAFFLOWER OIL\SOYBEAN OIL
     Indication: Toxicity to various agents
     Dosage: UNK
     Route: 065

REACTIONS (10)
  - Hypertriglyceridaemia [Recovering/Resolving]
  - Pancreatitis [Recovered/Resolved]
  - Metabolic acidosis [Recovering/Resolving]
  - Electrocardiogram QT prolonged [Recovering/Resolving]
  - Hypotension [Recovering/Resolving]
  - Electrocardiogram QRS complex [Recovering/Resolving]
  - Nodal rhythm [Recovering/Resolving]
  - Seizure [Recovering/Resolving]
  - Hyperlipidaemia [Recovering/Resolving]
  - Overdose [Recovering/Resolving]
